FAERS Safety Report 9358933 (Version 1)
Quarter: 2013Q2

REPORT INFORMATION
  Report Type: Spontaneous
  Country: IT (occurrence: None)
  Receive Date: 20130617
  Receipt Date: 20130617
  Transmission Date: 20140414
  Serious: Yes (Other)
  Sender: FDA-Public Use
  Company Number: FK201301999

PATIENT
  Age: 13 Year
  Sex: Female

DRUGS (2)
  1. METHYLPREDNISOLONE (MANUFACTURER UNKNOWN) (METHYLPREDNISOLONE SODIUM SUCCINATE) (METHYLPREDNISOLONE SODIUM SUCCINATE) [Suspect]
     Indication: MULTIPLE SCLEROSIS
     Dosage: 5.5 GM, TOTAL DOSE OVER 6 DAYS AFTERN LP DONE, INTRAVENOUS (NOTH OTHERWISE SPECIFIED)
     Route: 042
  2. METHYLPREDNISOLONE (MANUFACTURER UNKNOWN) (METHYLPREDNISOLONE SODIUM SUCCINATE) (METHYLPREDNISOLONE SODIUM SUCCINATE) [Suspect]
     Dosage: 5.5 GM, TOTAL DOSE OVER 6 DAYS AFTERN LP DONE, INTRAVENOUS (NOTH OTHERWISE SPECIFIED)
     Route: 042

REACTIONS (1)
  - Cerebral venous thrombosis [None]
